FAERS Safety Report 7950473-2 (Version None)
Quarter: 2011Q4

REPORT INFORMATION
  Report Type: 
  Country: None (occurrence: None)
  Receive Date: 20111130
  Receipt Date: 20111117
  Transmission Date: 20120403
  Serious: Yes (Hospitalization)
  Sender: FDA-Public Use
  Company Number: US-DX529-2011DX000054

PATIENT
  Age: 54 Year
  Sex: Female
  Weight: 115.67 kg

DRUGS (9)
  1. KALBITOR [Suspect]
     Dates: start: 20110914, end: 20110914
  2. FENTANYL-100 [Concomitant]
     Indication: PRODUCT USED FOR UNKNOWN INDICATION
  3. BENADRYL [Concomitant]
     Indication: PRODUCT USED FOR UNKNOWN INDICATION
  4. ASPIRIN [Concomitant]
     Indication: PRODUCT USED FOR UNKNOWN INDICATION
  5. PREDNISONE TAB [Concomitant]
     Indication: HEREDITARY ANGIOEDEMA
  6. KALBITOR [Suspect]
     Route: 058
     Dates: start: 20110101, end: 20110101
  7. SOLU-MEDROL [Concomitant]
     Indication: HEREDITARY ANGIOEDEMA
  8. SINGULAIR [Concomitant]
     Indication: PRODUCT USED FOR UNKNOWN INDICATION
  9. KALBITOR [Suspect]
     Indication: LOCALISED OEDEMA
     Route: 058
     Dates: start: 20110925

REACTIONS (2)
  - OEDEMA [None]
  - DRUG INEFFECTIVE FOR UNAPPROVED INDICATION [None]
